FAERS Safety Report 4961150-4 (Version None)
Quarter: 2006Q1

REPORT INFORMATION
  Report Type: 
  Country: None (occurrence: None)
  Receive Date: 20060201
  Receipt Date: 20051130
  Transmission Date: 20060701
  Serious: No
  Sender: FDA-Public Use
  Company Number: 2005PV005195

PATIENT
  Age: 54 Year
  Sex: Female
  Weight: 82.3732 kg

DRUGS (5)
  1. BYETTA [Suspect]
     Indication: DIABETES MELLITUS NON-INSULIN-DEPENDENT
     Dosage: SEE IMAGE
     Route: 058
     Dates: start: 20050701, end: 20050801
  2. BYETTA [Suspect]
     Indication: DIABETES MELLITUS NON-INSULIN-DEPENDENT
     Dosage: SEE IMAGE
     Route: 058
     Dates: start: 20050801
  3. AVANDIA [Concomitant]
  4. GLUCOVANCE [Concomitant]
  5. NASAL SPRAY [Concomitant]

REACTIONS (8)
  - ABDOMINAL DISTENSION [None]
  - DECREASED APPETITE [None]
  - EAR DISCOMFORT [None]
  - EAR DISORDER [None]
  - NASAL CONGESTION [None]
  - PRE-EXISTING CONDITION IMPROVED [None]
  - SINUS DISORDER [None]
  - WEIGHT INCREASED [None]
